FAERS Safety Report 7956300-1 (Version None)
Quarter: 2011Q4

REPORT INFORMATION
  Report Type: 
  Country: None (occurrence: None)
  Receive Date: 20111125
  Receipt Date: 20111115
  Transmission Date: 20120403
  Serious: Yes (Other)
  Sender: FDA-Public Use
  Company Number: 2011030328

PATIENT
  Sex: Female
  Weight: 80.7403 kg

DRUGS (8)
  1. BACLOFEN [Concomitant]
  2. GABAPENTIN [Concomitant]
  3. INDOMETHACIN [Concomitant]
  4. PRIVIGEN [Suspect]
     Indication: STIFF-MAN SYNDROME
     Dosage: (30 G QD, 30 GM; 30 ML/HR-150 ML/HR IN 4 HOURS (10% CONCENTRATION) INTRAVENOUS (NOT OTHERWISE SPECIF
     Route: 042
     Dates: start: 20110912, end: 20110915
  5. PAXIL [Concomitant]
  6. CLARITIN [Concomitant]
  7. GLYCOPYRROLATE [Concomitant]
  8. HYDROCHLOROTHIAZIDE [Concomitant]

REACTIONS (2)
  - NEUTROPENIA [None]
  - WHITE BLOOD CELL COUNT DECREASED [None]
